FAERS Safety Report 21221549 (Version 1)
Quarter: 2022Q3

REPORT INFORMATION
  Report Type: Spontaneous
  Country: CA (occurrence: CA)
  Receive Date: 20220817
  Receipt Date: 20220817
  Transmission Date: 20221026
  Serious: Yes (Life-Threatening, Hospitalization, Other)
  Sender: FDA-Public Use
  Company Number: None

PATIENT
  Age: 69 Year
  Sex: Male

DRUGS (4)
  1. MYCOPHENOLATE MOFETIL [Suspect]
     Active Substance: MYCOPHENOLATE MOFETIL
     Indication: Myocarditis
     Dosage: 1 EVERY 12 HOURS
     Route: 048
  2. METHYLPREDNISOLONE [Suspect]
     Active Substance: METHYLPREDNISOLONE
     Indication: Myocarditis
     Dosage: 1 EVERY 24 HOURS
     Route: 042
  3. AMIODARONE [Concomitant]
     Active Substance: AMIODARONE
  4. METHYLPREDNISOLONE [Suspect]
     Active Substance: METHYLPREDNISOLONE
     Indication: Myocarditis
     Dosage: 1 EVERY 24 HOURS
     Route: 042

REACTIONS (11)
  - Anaemia [Unknown]
  - Cytomegalovirus viraemia [Unknown]
  - Drug ineffective [Unknown]
  - Duodenal ulcer [Unknown]
  - Gastric ulcer [Unknown]
  - Gastritis [Unknown]
  - Gastrointestinal haemorrhage [Unknown]
  - Oesophagitis [Unknown]
  - Respiratory failure [Unknown]
  - Somnolence [Unknown]
  - Off label use [Unknown]
